FAERS Safety Report 23253000 (Version 2)
Quarter: 2024Q1

REPORT INFORMATION
  Report Type: Spontaneous
  Country: US (occurrence: US)
  Receive Date: 20231201
  Receipt Date: 20240206
  Transmission Date: 20240410
  Serious: No
  Sender: FDA-Public Use
  Company Number: US-SANDOZ-SDZ2023US062027

PATIENT
  Sex: Male

DRUGS (1)
  1. ALBUTEROL SULFATE [Suspect]
     Active Substance: ALBUTEROL SULFATE
     Indication: Asthma
     Dosage: UNK, QD, ONE PUFF
     Route: 048

REACTIONS (4)
  - Device use confusion [Unknown]
  - Off label use [Unknown]
  - Drug ineffective [Unknown]
  - Device dispensing error [Unknown]
